FAERS Safety Report 10227939 (Version 6)
Quarter: 2014Q4

REPORT INFORMATION
  Report Type: Spontaneous
  Country: US (occurrence: US)
  Receive Date: 20140610
  Receipt Date: 20141209
  Transmission Date: 20150528
  Serious: Yes (Hospitalization, Other)
  Sender: FDA-Public Use
  Company Number: US-EXELIXIS-CABO-14004042

PATIENT
  Sex: Male
  Weight: 75 kg

DRUGS (12)
  1. NEPRO [Concomitant]
     Active Substance: DIETARY SUPPLEMENT
  2. COMETRIQ [Suspect]
     Active Substance: CABOZANTINIB S-MALATE
     Dosage: 60 MG, QD
     Route: 048
     Dates: start: 20140211
  3. COMETRIQ [Suspect]
     Active Substance: CABOZANTINIB S-MALATE
     Dosage: 60 MG, QD
     Route: 048
  4. OMEPRAZOLE. [Concomitant]
     Active Substance: OMEPRAZOLE
  5. GNP CENTURY TABLET [Concomitant]
  6. INLYTA [Concomitant]
     Active Substance: AXITINIB
  7. COMETRIQ [Suspect]
     Active Substance: CABOZANTINIB S-MALATE
     Dosage: 40 MG QD, MON-FRI
     Route: 048
  8. CARVEDILOL. [Concomitant]
     Active Substance: CARVEDILOL
  9. COMETRIQ [Suspect]
     Active Substance: CABOZANTINIB S-MALATE
     Indication: METASTASIS
     Dosage: 80 MG, QD
     Route: 048
     Dates: start: 20140204, end: 20140208
  10. RENAPLEX [Concomitant]
  11. COMETRIQ [Suspect]
     Active Substance: CABOZANTINIB S-MALATE
     Dosage: 40 MG, QD
     Route: 048
     Dates: start: 20140328
  12. AVODART [Concomitant]
     Active Substance: DUTASTERIDE

REACTIONS (29)
  - Teeth brittle [Unknown]
  - Abdominal distension [Unknown]
  - Nausea [Unknown]
  - Pericardial effusion [Unknown]
  - Skin disorder [Unknown]
  - Peripheral swelling [Unknown]
  - Temperature intolerance [Unknown]
  - Bronchitis [Unknown]
  - Muscle spasms [Unknown]
  - Oral pain [Unknown]
  - Hyperkeratosis [Unknown]
  - Gait disturbance [Unknown]
  - Dry skin [Unknown]
  - Impaired healing [Unknown]
  - Fatigue [Unknown]
  - Diarrhoea [Unknown]
  - Off label use [Unknown]
  - Fall [Unknown]
  - Joint injury [Unknown]
  - Pain [Unknown]
  - Burning sensation [Unknown]
  - Hypoaesthesia [Unknown]
  - Bursitis [Unknown]
  - Anaemia [Unknown]
  - Pain in extremity [Unknown]
  - Oral discomfort [Unknown]
  - Contusion [Unknown]
  - Decreased appetite [Unknown]
  - Weight decreased [Unknown]

NARRATIVE: CASE EVENT DATE: 2014
